FAERS Safety Report 9684087 (Version 3)
Quarter: 2013Q4

REPORT INFORMATION
  Report Type: Spontaneous
  Country: JP (occurrence: JP)
  Receive Date: 20131112
  Receipt Date: 20131213
  Transmission Date: 20140711
  Serious: Yes (Other)
  Sender: FDA-Public Use
  Company Number: JP-ROCHE-1298386

PATIENT
  Age: 78 Year
  Sex: Male
  Weight: 70 kg

DRUGS (15)
  1. MIRCERA [Suspect]
     Indication: NEPHROGENIC ANAEMIA
     Dosage: DOSE INCREASED
     Route: 058
     Dates: start: 20120711, end: 20130531
  2. MIRCERA [Suspect]
     Dosage: DOSE INCREASED
     Route: 042
     Dates: start: 20130628, end: 20130726
  3. MIRCERA [Suspect]
     Dosage: DOSE INCREASED
     Route: 042
     Dates: start: 20130808, end: 20130808
  4. MIRCERA [Suspect]
     Dosage: DOSE INCREASED
     Route: 042
     Dates: start: 20130823, end: 20130823
  5. MIRCERA [Suspect]
     Route: 058
     Dates: start: 20130920, end: 20131011
  6. NORVASC [Concomitant]
     Route: 048
  7. FEBURIC [Concomitant]
     Route: 048
     Dates: start: 20130823
  8. PRERAN [Concomitant]
     Route: 048
  9. SELBEX [Concomitant]
     Route: 048
  10. LEVOCARNITINE [Concomitant]
     Route: 048
     Dates: start: 20121010
  11. METHYCOBAL [Concomitant]
     Route: 048
  12. CINAL [Concomitant]
     Route: 048
  13. OPALMON [Concomitant]
     Route: 048
  14. FOLIAMIN [Concomitant]
     Route: 048
     Dates: start: 20110817
  15. MEILAX [Concomitant]
     Route: 048

REACTIONS (2)
  - Myelodysplastic syndrome [Not Recovered/Not Resolved]
  - Abscess oral [Recovered/Resolved]
